FAERS Safety Report 24325687 (Version 5)
Quarter: 2024Q4

REPORT INFORMATION
  Report Type: Report from Study
  Country: US (occurrence: US)
  Receive Date: 20240917
  Receipt Date: 20241215
  Transmission Date: 20250115
  Serious: No
  Sender: ACADIA PHARMACEUTICALS
  Company Number: US-ACADIA PHARMACEUTICALS INC.-ACA-2024-TRF-005105

PATIENT
  Age: 9 Year
  Sex: Female

DRUGS (10)
  1. DAYBUE [Suspect]
     Active Substance: TROFINETIDE
     Indication: Rett syndrome
     Dosage: 5 MILLILITER, BID
     Dates: start: 20240823
  2. DAYBUE [Suspect]
     Active Substance: TROFINETIDE
     Dosage: 40 MILLILITER, BID
  3. DAYBUE [Suspect]
     Active Substance: TROFINETIDE
     Dosage: 40 MILLILITER, BID
     Dates: end: 20241125
  4. GUAR GUM [Concomitant]
     Active Substance: GUAR GUM
  5. CLONIDINE [Concomitant]
     Active Substance: CLONIDINE
  6. RISPERIDONE [Concomitant]
     Active Substance: RISPERIDONE
  7. TRILEPTAL [Concomitant]
     Active Substance: OXCARBAZEPINE
  8. PEPTO-BISMOL [Concomitant]
     Active Substance: BISMUTH SUBSALICYLATE
     Indication: Diarrhoea
     Dosage: 10 MILLILITER
  9. TRIAMCINOLONE [Concomitant]
     Active Substance: TRIAMCINOLONE
  10. NYSTATIN [Concomitant]
     Active Substance: NYSTATIN

REACTIONS (4)
  - Underdose [Not Recovered/Not Resolved]
  - Product use issue [Recovered/Resolved]
  - Diarrhoea [Not Recovered/Not Resolved]
  - Diarrhoea [Not Recovered/Not Resolved]

NARRATIVE: CASE EVENT DATE: 20240823
